FAERS Safety Report 7830442-3 (Version None)
Quarter: 2011Q4

REPORT INFORMATION
  Report Type: 
  Country: None (occurrence: None)
  Receive Date: 20111021
  Receipt Date: 20111017
  Transmission Date: 20120403
  Serious: Yes (Death, Hospitalization, Other)
  Sender: FDA-Public Use
  Company Number: JP-ACTELION-A-CH2011-47950

PATIENT
  Age: 83 Year
  Sex: Female
  Weight: 45 kg

DRUGS (14)
  1. CARBOCISTEINE [Concomitant]
  2. ALFACALCIDOL [Concomitant]
  3. ALENDRONATE SODIUM [Concomitant]
  4. FAMOTIDINE [Concomitant]
  5. BROTIZOLAM [Concomitant]
  6. OXYGEN [Concomitant]
  7. AMBROXOL HYDROCHLORIDE [Concomitant]
  8. SPIRONOLACTONE [Concomitant]
  9. AMLODIPINE BESYLATE [Concomitant]
  10. PREDNISOLONE [Concomitant]
  11. GLIMEPIRIDE [Concomitant]
  12. TRACLEER [Suspect]
     Indication: PULMONARY ARTERIAL HYPERTENSION
     Dosage: 62.5 MG, BID
     Route: 048
     Dates: start: 20101216, end: 20110106
  13. SULFAMETHOXAZOLE AND TRIMETHOPRIM [Concomitant]
  14. ASPIRIN [Concomitant]

REACTIONS (4)
  - PNEUMONIA BACTERIAL [None]
  - INTERSTITIAL LUNG DISEASE [None]
  - ALANINE AMINOTRANSFERASE INCREASED [None]
  - OEDEMA PERIPHERAL [None]
